FAERS Safety Report 9178304 (Version 1)
Quarter: 2012Q4

REPORT INFORMATION
  Report Type: Report from Study
  Country: AU (occurrence: AU)
  Receive Date: 20121029
  Receipt Date: 20121029
  Transmission Date: 20130627
  Serious: Yes (Disabling)
  Sender: FDA-Public Use
  Company Number: AU-ROCHE-1145730

PATIENT
  Age: 87 None
  Sex: Female

DRUGS (13)
  1. METHOXY POLYETHYLENE GLYCOL-EPOETIN BETA [Suspect]
     Indication: NEPHROGENIC ANAEMIA
     Route: 058
     Dates: start: 20100514, end: 20121010
  2. ATORVASTATIN [Concomitant]
     Route: 065
  3. SALBUTAMOL [Concomitant]
     Route: 065
  4. FLIXOTIDE [Concomitant]
     Route: 065
  5. TIOTROPIUM [Concomitant]
     Route: 065
  6. NORSPAN [Concomitant]
     Route: 065
  7. GTN PATCH [Concomitant]
     Route: 065
  8. MIXTARD [Concomitant]
     Route: 065
  9. DILTIAZEM [Concomitant]
     Route: 065
  10. ASPIRIN [Concomitant]
     Route: 065
  11. FRUSEMIDE [Concomitant]
     Route: 065
  12. TRAMADOL [Concomitant]
     Route: 065
  13. ESOMEPRAZOLE [Concomitant]

REACTIONS (4)
  - Chest pain [Unknown]
  - Acute pulmonary oedema [Unknown]
  - Troponin normal [Unknown]
  - Iron deficiency anaemia [Unknown]
